FAERS Safety Report 6220294-X (Version None)
Quarter: 2009Q2

REPORT INFORMATION
  Report Type: 
  Country: None (occurrence: None)
  Receive Date: 20090518
  Receipt Date: 20090430
  Transmission Date: 20091009
  Serious: Yes (Hospitalization)
  Sender: FDA-Public Use
  Company Number: BVT-000091

PATIENT
  Sex: Female

DRUGS (3)
  1. HUMIRA [Suspect]
     Indication: RHEUMATOID ARTHRITIS
     Dosage: (40 MG 1X/2 WEEKS SUBCUTANEOUS)
     Route: 058
     Dates: start: 20030201, end: 20070201
  2. METHOTREXATE [Suspect]
     Dosage: ()
     Dates: start: 20010701, end: 20050601
  3. KINERET [Suspect]
     Indication: RHEUMATOID ARTHRITIS
     Dosage: ()
     Dates: start: 20040901, end: 20050601

REACTIONS (1)
  - B-CELL LYMPHOMA [None]
